FAERS Safety Report 5754700-1 (Version None)
Quarter: 2008Q2

REPORT INFORMATION
  Report Type: 
  Country: None (occurrence: None)
  Receive Date: 20080530
  Receipt Date: 20080521
  Transmission Date: 20081010
  Serious: Yes (Other)
  Sender: FDA-Public Use
  Company Number: US-PFIZER INC-2008044100

PATIENT
  Sex: Male
  Weight: 133.63 kg

DRUGS (9)
  1. CELEBREX [Suspect]
  2. LYRICA [Suspect]
  3. CHANTIX [Suspect]
     Indication: SMOKING CESSATION THERAPY
     Dates: start: 20080514, end: 20080518
  4. MECLIZINE [Suspect]
     Indication: DIZZINESS
  5. CENTRUM SILVER [Concomitant]
  6. METOPROLOL TARTRATE [Concomitant]
  7. METFORMIN HCL [Concomitant]
  8. ZOLPIDEM [Concomitant]
  9. GLIPIZIDE [Concomitant]

REACTIONS (3)
  - ARTERIAL OCCLUSIVE DISEASE [None]
  - DIZZINESS [None]
  - DYSPNOEA [None]
